FAERS Safety Report 7057948-1 (Version None)
Quarter: 2010Q4

REPORT INFORMATION
  Report Type: 
  Country: None (occurrence: None)
  Receive Date: 20101022
  Receipt Date: 20101019
  Transmission Date: 20110411
  Serious: Yes (Death, Hospitalization, Other)
  Sender: FDA-Public Use
  Company Number: AU-SHIRE-SPV1-2010-01820

PATIENT
  Sex: Female

DRUGS (2)
  1. ANAGRELIDE HCL [Suspect]
     Indication: THROMBOCYTOSIS
     Dosage: .5 MG, 3X/DAY:TID
     Route: 065
  2. TASIGNA [Suspect]
     Indication: CHRONIC MYELOID LEUKAEMIA
     Dosage: UNK, UNK
     Route: 048
     Dates: start: 20080701

REACTIONS (6)
  - DEATH [None]
  - DYSPNOEA [None]
  - PLATELET COUNT INCREASED [None]
  - POOR PERIPHERAL CIRCULATION [None]
  - PULMONARY FIBROSIS [None]
  - SKIN LESION [None]
